FAERS Safety Report 8107062 (Version 3)
Quarter: 2013Q4

REPORT INFORMATION
  Report Type: Spontaneous
  Country: US (occurrence: US)
  Receive Date: 20110825
  Receipt Date: 20131202
  Transmission Date: 20140711
  Serious: Yes (Hospitalization, Other)
  Sender: FDA-Public Use
  Company Number: US-BAYER-2011-074991

PATIENT
  Age: 32 Year
  Sex: Female

DRUGS (6)
  1. YAZ [Suspect]
     Indication: CONTRACEPTION
     Dosage: UNK
     Dates: start: 200704, end: 200708
  2. YASMIN [Suspect]
     Indication: CONTRACEPTION
     Dosage: UNK
     Dates: start: 200301, end: 200310
  3. YASMIN [Suspect]
     Indication: CONTRACEPTION
     Dosage: UNK
     Dates: start: 200407, end: 200503
  4. YASMIN [Suspect]
     Indication: CONTRACEPTION
     Dosage: UNK
     Dates: start: 200512, end: 200608
  5. LISINOPRIL [Concomitant]
  6. PEPCID [Concomitant]

REACTIONS (4)
  - Cardiac failure congestive [None]
  - Gallbladder injury [None]
  - Pancreatic injury [None]
  - Cholelithiasis [None]
